FAERS Safety Report 7582767-7 (Version None)
Quarter: 2011Q2

REPORT INFORMATION
  Report Type: 
  Country: None (occurrence: None)
  Receive Date: 20110630
  Receipt Date: 20110622
  Transmission Date: 20111010
  Serious: Yes (Hospitalization, Other)
  Sender: FDA-Public Use
  Company Number: FR-PFIZER INC-2011143901

PATIENT
  Age: 80 Year
  Sex: Male

DRUGS (4)
  1. ZOCOR [Concomitant]
  2. CORDARONE [Suspect]
     Dosage: 200 MG, UNK
     Route: 048
     Dates: start: 20060101, end: 20110401
  3. HYTACAND [Concomitant]
  4. LERCANIDIPINE [Concomitant]

REACTIONS (3)
  - ASTHENIA [None]
  - HYPERTHYROIDISM [None]
  - GENERAL PHYSICAL HEALTH DETERIORATION [None]
